FAERS Safety Report 6162719-4 (Version None)
Quarter: 2009Q2

REPORT INFORMATION
  Report Type: 
  Country: None (occurrence: None)
  Receive Date: 20090421
  Receipt Date: 20081231
  Transmission Date: 20091009
  Serious: No
  Sender: FDA-Public Use
  Company Number: US-ASTRAZENECA-2008UW05070

PATIENT
  Age: 57 Year
  Sex: Male
  Weight: 65.8 kg

DRUGS (3)
  1. TOPROL-XL [Suspect]
     Indication: HYPERTENSION
     Dosage: 50 MG
     Route: 048
  2. VALIUM [Concomitant]
  3. CIPROFLAXACIN [Concomitant]

REACTIONS (5)
  - DRY MOUTH [None]
  - FATIGUE [None]
  - INSOMNIA [None]
  - POLLAKIURIA [None]
  - THIRST [None]
